FAERS Safety Report 6148411-0 (Version None)
Quarter: 2009Q2

REPORT INFORMATION
  Report Type: 
  Country: None (occurrence: None)
  Receive Date: 20090406
  Receipt Date: 20090406
  Transmission Date: 20091009
  Serious: No
  Sender: FDA-Public Use
  Company Number: None

PATIENT
  Age: 7 Year
  Sex: Male

DRUGS (1)
  1. ADDERALL 10 [Suspect]
     Indication: ATTENTION DEFICIT/HYPERACTIVITY DISORDER
     Dosage: 10 MILIGRAMS TWICE A DAY PO STILL TAKING
     Route: 048
     Dates: start: 20060809, end: 20090401

REACTIONS (11)
  - AGGRESSION [None]
  - CLUMSINESS [None]
  - EATING DISORDER [None]
  - GROWTH RETARDATION [None]
  - LETHARGY [None]
  - MOVEMENT DISORDER [None]
  - PERSONALITY CHANGE [None]
  - PSYCHOMOTOR HYPERACTIVITY [None]
  - SLEEP DISORDER [None]
  - SPEECH DISORDER [None]
  - TIC [None]
